FAERS Safety Report 24561721 (Version 1)
Quarter: 2024Q4

REPORT INFORMATION
  Report Type: Spontaneous
  Country: NO (occurrence: NO)
  Receive Date: 20241029
  Receipt Date: 20241029
  Transmission Date: 20250115
  Serious: Yes (Other)
  Sender: NOVARTIS
  Company Number: NO-002147023-NVSC2024NO208754

PATIENT
  Age: 70 Year
  Sex: Male

DRUGS (3)
  1. TAFINLAR [Suspect]
     Active Substance: DABRAFENIB MESYLATE
     Indication: Product used for unknown indication
     Dosage: UNK
     Route: 065
  2. MEKINIST [Suspect]
     Active Substance: TRAMETINIB DIMETHYL SULFOXIDE
     Indication: Product used for unknown indication
     Dosage: UNK
     Route: 065
  3. IPILIMUMAB [Suspect]
     Active Substance: IPILIMUMAB
     Indication: Product used for unknown indication
     Dosage: UNK
     Route: 065

REACTIONS (8)
  - Erythema [Unknown]
  - Mouth swelling [Unknown]
  - Pharyngeal swelling [Unknown]
  - Metastases to lung [Unknown]
  - Hepatitis [Recovering/Resolving]
  - Nodule [Unknown]
  - Swelling face [Unknown]
  - Pyrexia [Unknown]
